FAERS Safety Report 7316211-1 (Version None)
Quarter: 2011Q1

REPORT INFORMATION
  Report Type: 
  Country: None (occurrence: None)
  Receive Date: 20110225
  Receipt Date: 20110215
  Transmission Date: 20110831
  Serious: Yes (Hospitalization, Other)
  Sender: FDA-Public Use
  Company Number: US-ROCHE-735525

PATIENT
  Sex: Male
  Weight: 106.6 kg

DRUGS (6)
  1. AMOXICILLIN [Concomitant]
  2. ACCUTANE [Suspect]
     Route: 065
     Dates: start: 19850101, end: 19851201
  3. MOTRIN [Concomitant]
  4. ACCUTANE [Suspect]
     Indication: FOLLICULITIS
     Route: 065
     Dates: start: 19820101, end: 19820201
  5. ACCUTANE [Suspect]
     Route: 065
     Dates: start: 19821201, end: 19830101
  6. TETRACYCLINE [Concomitant]

REACTIONS (5)
  - ARTHRITIS [None]
  - GASTROINTESTINAL INJURY [None]
  - COLITIS ULCERATIVE [None]
  - ANAL FISTULA [None]
  - IRRITABLE BOWEL SYNDROME [None]
